FAERS Safety Report 10578443 (Version 1)
Quarter: 2014Q4

REPORT INFORMATION
  Report Type: Spontaneous
  Country: US (occurrence: None)
  Receive Date: 20141107
  Receipt Date: 20141107
  Transmission Date: 20150529
  Serious: Yes (Other)
  Sender: FDA-Public Use
  Company Number: 1311158

PATIENT
  Age: 53 Year
  Sex: Female

DRUGS (2)
  1. NAPROXEN. [Suspect]
     Active Substance: NAPROXEN
     Indication: BACK PAIN
     Dosage: (2 IN 1 D), UNKNOWN
  2. ESOMEPRAZOLE (ESOMEPRAZOLE) [Concomitant]
     Active Substance: ESOMEPRAZOLE

REACTIONS (1)
  - Large intestinal ulcer [None]
